FAERS Safety Report 8399700-0 (Version None)
Quarter: 2012Q1

REPORT INFORMATION
  Report Type: 
  Country: None (occurrence: None)
  Receive Date: 20120323
  Receipt Date: 20110719
  Transmission Date: 20120608
  Serious: Yes (Other)
  Sender: FDA-Public Use
  Company Number: 163-21880-11072365

PATIENT
  Age: 64 Year
  Sex: Male

DRUGS (2)
  1. REVLIMID [Suspect]
     Indication: MULTIPLE MYELOMA
     Dosage: 25 MG, 1 IN 1 D, PO ; 5 MG, DAILY ON DAYS 1-21, PO
     Route: 048
     Dates: start: 20070521, end: 20090602
  2. REVLIMID [Suspect]
     Indication: MULTIPLE MYELOMA
     Dosage: 25 MG, 1 IN 1 D, PO ; 5 MG, DAILY ON DAYS 1-21, PO
     Route: 048
     Dates: start: 20100826

REACTIONS (1)
  - PANCYTOPENIA [None]
